FAERS Safety Report 8975635 (Version 1)
Quarter: 2012Q4

REPORT INFORMATION
  Report Type: 
  Country: US (occurrence: US)
  Receive Date: 20121219
  Receipt Date: 20121219
  Transmission Date: 20130627
  Serious: No
  Sender: FDA-Public Use
  Company Number: US-AMGEN-USASP2012073051

PATIENT
  Sex: Female

DRUGS (2)
  1. PROLIA [Suspect]
     Indication: PRODUCT USED FOR UNKNOWN INDICATION
     Dosage: UNK
     Dates: start: 201112
  2. PROVENTIL                          /00139501/ [Concomitant]
     Dosage: UNK, bid

REACTIONS (14)
  - Lower respiratory tract infection [Unknown]
  - Swelling [Unknown]
  - Joint swelling [Unknown]
  - Fall [Unknown]
  - Fractured coccyx [Unknown]
  - Rib fracture [Unknown]
  - Jaw disorder [Unknown]
  - Malaise [Unknown]
  - Fatigue [Unknown]
  - Oedema peripheral [Unknown]
  - Constipation [Unknown]
  - Gastrooesophageal reflux disease [Unknown]
  - Skin exfoliation [Unknown]
  - Cystitis [Unknown]
